FAERS Safety Report 5409414-4 (Version None)
Quarter: 2007Q3

REPORT INFORMATION
  Report Type: 
  Country: None (occurrence: None)
  Receive Date: 20070809
  Receipt Date: 20070806
  Transmission Date: 20080115
  Serious: Yes (Other)
  Sender: FDA-Public Use
  Company Number: DE-BRISTOL-MYERS SQUIBB COMPANY-13868286

PATIENT
  Age: 35 Year
  Sex: Male

DRUGS (3)
  1. BARACLUDE [Suspect]
     Dates: start: 20061201, end: 20070301
  2. DOCITON [Concomitant]
  3. PHYTOMENADIONE [Concomitant]

REACTIONS (1)
  - EPILEPSY [None]
